FAERS Safety Report 8983994 (Version 1)
Quarter: 2012Q4

REPORT INFORMATION
  Report Type: Spontaneous
  Country: US (occurrence: None)
  Receive Date: 20121212
  Receipt Date: 20121212
  Transmission Date: 20130627
  Serious: Yes (Death, Hospitalization)
  Sender: FDA-Public Use
  Company Number: 2012120017

PATIENT
  Age: 75 Year
  Sex: Male

DRUGS (13)
  1. TOREM [Suspect]
     Route: 048
     Dates: start: 20101123, end: 20120930
  2. SOLIAN [Suspect]
     Dosage: (400 mg, 2 in 1 D)
     Route: 048
     Dates: start: 201105, end: 20121003
  3. DISTRANEURIN [Suspect]
     Dosage: (300 mg, 1 in 1 D)
     Route: 048
     Dates: start: 20110920, end: 20121010
  4. CITALOPRAM (CITALOPRAM) [Suspect]
     Dosage: (20 mg, 1 in 1 D)
     Route: 048
     Dates: start: 20110321
  5. ALDACTONE [Suspect]
     Dosage: (50 mg, 1 in 1 D)
     Route: 048
     Dates: start: 20101123, end: 20120930
  6. BELOC ZOK [Suspect]
     Dosage: (50 mg, 1 in 1 D)
     Route: 048
     Dates: start: 20101011, end: 201210
  7. DETRUSITOL [Suspect]
     Dosage: (4 mg, 1 in 1 D)
     Route: 048
     Dates: start: 20110104, end: 201210
  8. RAMIPRIL (RAMIPRIL) [Suspect]
     Dosage: (1.25 mg, 1 in 1 D)
     Route: 048
     Dates: start: 20120618, end: 201210
  9. NEXIUM [Suspect]
     Dosage: (20 g, 1 in 1 D)
     Route: 048
     Dates: start: 20101103
  10. PRADIF (TAMSULOSIN HYDROCHLORIDE) [Concomitant]
  11. LANTUS (INSULIN GLARGINE) [Concomitant]
  12. SIMVASTATIN (SIMVASTATIN) [Concomitant]
  13. ASPIRIN CARDIO (ACETYLSALICYLIC ACID) [Concomitant]

REACTIONS (9)
  - Confusional state [None]
  - Hyperglycaemia [None]
  - Lobar pneumonia [None]
  - Disturbance in attention [None]
  - Balance disorder [None]
  - Fall [None]
  - Subdural haematoma [None]
  - Aneurysm [None]
  - Cardiac failure [None]
